FAERS Safety Report 6994129-1 (Version None)
Quarter: 2010Q3

REPORT INFORMATION
  Report Type: 
  Country: None (occurrence: None)
  Receive Date: 20100917
  Receipt Date: 20100617
  Transmission Date: 20110219
  Serious: No
  Sender: FDA-Public Use
  Company Number: US-ASTRAZENECA-2010SE28456

PATIENT
  Age: 59 Year
  Sex: Female
  Weight: 61.7 kg

DRUGS (14)
  1. SEROQUEL [Suspect]
     Indication: ANXIETY
     Route: 048
  2. SEROQUEL [Suspect]
     Indication: DEPRESSION
     Route: 048
  3. LUNESTA [Concomitant]
  4. LOVASTATIN [Concomitant]
  5. ATENOLOL [Concomitant]
  6. MIRAPEX [Concomitant]
  7. POTASSIUM CHLORIDE [Concomitant]
  8. OMEPRAZOLE [Concomitant]
  9. ADVAIR DISKUS 100/50 [Concomitant]
  10. SPIRIVA [Concomitant]
  11. ALBUTEROL [Concomitant]
  12. DIAZEPAM [Concomitant]
  13. KLONOPIN [Concomitant]
  14. NITROGLYCERIN [Concomitant]

REACTIONS (5)
  - CONTUSION [None]
  - FALL [None]
  - LARYNGITIS [None]
  - OEDEMA PERIPHERAL [None]
  - POLYPECTOMY [None]
